FAERS Safety Report 7589452-6 (Version None)
Quarter: 2011Q3

REPORT INFORMATION
  Report Type: 
  Country: None (occurrence: None)
  Receive Date: 20110705
  Receipt Date: 20110622
  Transmission Date: 20111222
  Serious: Yes (Hospitalization)
  Sender: FDA-Public Use
  Company Number: US-ROCHE-774774

PATIENT
  Sex: Male
  Weight: 89 kg

DRUGS (8)
  1. PERTUZUMAB [Suspect]
     Dosage: MAINTENANCE DOSE, LAST DOSE PRIOR TO SAE ON 12 APRIL 2011, PERMANENTLY DISCONTINUED
     Route: 042
  2. XANAX [Concomitant]
     Indication: ANXIETY
     Dosage: FREQUENCY: AS NEEDED
  3. PHENERGAN HCL [Concomitant]
     Indication: NAUSEA
     Dosage: FREQUENCY: AS NEEDED
  4. LEXAPRO [Concomitant]
     Indication: DEPRESSION
     Dosage: FREQUENCY: EVERY DAY
  5. ZOFRAN [Concomitant]
     Indication: NAUSEA
     Dosage: FREQUENCY: AS NEEDED
  6. PERTUZUMAB [Suspect]
     Indication: NEUROENDOCRINE CARCINOMA
     Dosage: LOADING DOSE AS PER PROTOCOL
     Route: 042
     Dates: start: 20110301, end: 20110301
  7. OCTREOTIDE ACETATE [Suspect]
     Indication: NEUROENDOCRINE CARCINOMA
     Dosage: ROUTE: PUMP CONT, PERMANENTLY DISCONTINUED
     Route: 050
  8. BEVACIZUMAB [Suspect]
     Indication: NEUROENDOCRINE CARCINOMA
     Dosage: LAST DOSE PRIOR TO SAE ON 12 APRIL 2011, CYCLE 3, PERMANENTLY DISCONTINUED
     Route: 042
     Dates: start: 20110301

REACTIONS (1)
  - CARCINOID SYNDROME [None]
